FAERS Safety Report 14815908 (Version 2)
Quarter: 2018Q2

REPORT INFORMATION
  Report Type: Spontaneous
  Country: ES (occurrence: ES)
  Receive Date: 20180426
  Receipt Date: 20180518
  Transmission Date: 20180711
  Serious: Yes (Congenital Anomaly, Other)
  Sender: FDA-Public Use
  Company Number: ES-MYLANLABS-2018M1028092

PATIENT
  Sex: Male
  Weight: 2.49 kg

DRUGS (3)
  1. CLOZAPINE. [Suspect]
     Active Substance: CLOZAPINE
     Dosage: 300 MG, QD
     Route: 064
     Dates: start: 2015
  2. CLOZAPINE. [Suspect]
     Active Substance: CLOZAPINE
     Indication: FOETAL EXPOSURE DURING PREGNANCY
     Dosage: 200 MG, QD
     Route: 064
     Dates: start: 2015
  3. DIAZEPAM. [Suspect]
     Active Substance: DIAZEPAM
     Indication: FOETAL EXPOSURE DURING PREGNANCY
     Dosage: 10 MG, QD
     Route: 064

REACTIONS (6)
  - Respiratory disorder [Unknown]
  - Foetal exposure during pregnancy [Unknown]
  - Cryptorchism [Unknown]
  - Foetal growth restriction [Unknown]
  - Inguinal hernia [Unknown]
  - Developmental delay [Unknown]
